FAERS Safety Report 12273323 (Version 2)
Quarter: 2016Q2

REPORT INFORMATION
  Report Type: Report from Study
  Country: AR (occurrence: AR)
  Receive Date: 20160415
  Receipt Date: 20160419
  Transmission Date: 20160815
  Serious: No
  Sender: FDA-Public Use
  Company Number: PHHY2016AR049601

PATIENT
  Age: 81 Year
  Sex: Female

DRUGS (3)
  1. ONBREZ BREEZHALER [Suspect]
     Active Substance: INDACATEROL
     Indication: CHRONIC OBSTRUCTIVE PULMONARY DISEASE
     Dosage: 1 DF, QD (STARTED 6 MONTHS AGO)
     Route: 065
  2. XOTERNA BREEZHALER [Suspect]
     Active Substance: GLYCOPYRRONIUM\INDACATEROL
     Indication: CHRONIC OBSTRUCTIVE PULMONARY DISEASE
     Dosage: 1 DF, QD
     Route: 065
     Dates: start: 20160410, end: 20160411
  3. EXFORGE [Suspect]
     Active Substance: AMLODIPINE BESYLATE\VALSARTAN
     Indication: BLOOD PRESSURE ABNORMAL
     Dosage: 1 DF (AMLODIPINE 5 MG, VALSARTAN 160 MG), QD
     Route: 065

REACTIONS (6)
  - Headache [Recovered/Resolved]
  - Malaise [Recovering/Resolving]
  - Insomnia [Recovering/Resolving]
  - Feeling abnormal [Recovered/Resolved]
  - Palpitations [Recovered/Resolved]
  - Dizziness [Recovered/Resolved]

NARRATIVE: CASE EVENT DATE: 20160410
